FAERS Safety Report 9381012 (Version 2)
Quarter: 2013Q3

REPORT INFORMATION
  Report Type: Spontaneous
  Country: FR (occurrence: FR)
  Receive Date: 20130703
  Receipt Date: 20130827
  Transmission Date: 20140515
  Serious: Yes (Other)
  Sender: FDA-Public Use
  Company Number: FR-BRISTOL-MYERS SQUIBB COMPANY-19046143

PATIENT
  Sex: Female

DRUGS (1)
  1. PRAVASTATINE [Suspect]
     Dosage: REINTRODUCED WITH 20MG/D

REACTIONS (2)
  - Intervertebral disc protrusion [Recovered/Resolved]
  - Myalgia [Unknown]
